FAERS Safety Report 24177753 (Version 2)
Quarter: 2025Q2

REPORT INFORMATION
  Report Type: Spontaneous
  Country: US (occurrence: US)
  Receive Date: 20240806
  Receipt Date: 20250417
  Transmission Date: 20250717
  Serious: Yes (Hospitalization, Other)
  Sender: BRISTOL MYERS SQUIBB
  Company Number: US-BRISTOL-MYERS SQUIBB COMPANY-2024-123322

PATIENT
  Age: 73 Year
  Sex: Male

DRUGS (1)
  1. ONUREG [Suspect]
     Active Substance: AZACITIDINE
     Indication: Product used for unknown indication
     Route: 048

REACTIONS (3)
  - Off label use [Unknown]
  - Product administration interrupted [Unknown]
  - Prostatic disorder [Recovered/Resolved]
